FAERS Safety Report 20136786 (Version 1)
Quarter: 2021Q4

REPORT INFORMATION
  Report Type: Spontaneous
  Country: GB (occurrence: GB)
  Receive Date: 20211201
  Receipt Date: 20211201
  Transmission Date: 20220303
  Serious: Yes (Disabling)
  Sender: FDA-Public Use
  Company Number: None

PATIENT
  Age: 66 Year
  Sex: Female

DRUGS (3)
  1. TRAMADOL [Suspect]
     Active Substance: TRAMADOL
     Indication: Product used for unknown indication
     Dosage: UNK (ONE OR TWO CAPSULES TO BE TAKEN UP TO FOUR TIME)
     Route: 048
     Dates: start: 20211119
  2. DIAZEPAM [Concomitant]
     Active Substance: DIAZEPAM
     Dosage: 1 DOSAGE FORM, PRN (UPTO 3)
     Route: 048
     Dates: start: 20211119
  3. PROCHLORPERAZINE [Concomitant]
     Active Substance: PROCHLORPERAZINE
     Dosage: 1 DOSAGE FORM, BID  (USE UP  TO TWICE DAILY)
     Dates: start: 20211012, end: 20211109

REACTIONS (2)
  - Anxiety [Recovered/Resolved]
  - Malaise [Unknown]
